FAERS Safety Report 4968170-4 (Version None)
Quarter: 2006Q1

REPORT INFORMATION
  Report Type: 
  Country: None (occurrence: None)
  Receive Date: 20060201
  Receipt Date: 20051007
  Transmission Date: 20060701
  Serious: No
  Sender: FDA-Public Use
  Company Number: 2005PV003028

PATIENT
  Age: 49 Year
  Sex: Female
  Weight: 95.2554 kg

DRUGS (3)
  1. BYETTA [Suspect]
     Dosage: SEE IMAGE
     Route: 058
     Dates: start: 20050701, end: 20050901
  2. BYETTA [Suspect]
     Dosage: SEE IMAGE
     Route: 058
     Dates: start: 20050901
  3. AVANDIA [Concomitant]

REACTIONS (5)
  - BLOOD GLUCOSE INCREASED [None]
  - ENERGY INCREASED [None]
  - NAUSEA [None]
  - THIRST [None]
  - WEIGHT DECREASED [None]
